FAERS Safety Report 7337357-8 (Version None)
Quarter: 2011Q1

REPORT INFORMATION
  Report Type: 
  Country: None (occurrence: None)
  Receive Date: 20110308
  Receipt Date: 20110225
  Transmission Date: 20110831
  Serious: Yes (Hospitalization)
  Sender: FDA-Public Use
  Company Number: AU-AMGEN-AUSSP2010007112

PATIENT
  Age: 87 Year
  Sex: Male

DRUGS (2)
  1. ARANESP [Suspect]
     Indication: RENAL FAILURE CHRONIC
     Dosage: 100 A?G, 2 TIMES/WK
  2. ARANESP [Suspect]
     Dosage: 200 A?G, QWK

REACTIONS (3)
  - HOSPITALISATION [None]
  - MEDICATION ERROR [None]
  - ACCIDENTAL OVERDOSE [None]
